FAERS Safety Report 13574611 (Version 1)
Quarter: 2017Q2

REPORT INFORMATION
  Report Type: Spontaneous
  Country: CH (occurrence: CH)
  Receive Date: 20170523
  Receipt Date: 20170523
  Transmission Date: 20170830
  Serious: Yes (Hospitalization, Other)
  Sender: FDA-Public Use
  Company Number: PHHY2017CH071635

PATIENT
  Sex: Male
  Weight: 3.34 kg

DRUGS (3)
  1. TEGRETOL [Suspect]
     Active Substance: CARBAMAZEPINE
     Indication: FOETAL EXPOSURE DURING PREGNANCY
     Dosage: MATERNAL DOSE (800 MG/24 HOURS)
     Route: 064
  2. TEGRETOL [Suspect]
     Active Substance: CARBAMAZEPINE
     Dosage: MATERNAL DOSE (900 MG/24 HOURS)
     Route: 064
  3. RIVOTRIL [Suspect]
     Active Substance: CLONAZEPAM
     Indication: FOETAL EXPOSURE DURING PREGNANCY
     Dosage: MATERNAL DOSE (0.2 MG)
     Route: 064

REACTIONS (9)
  - Selective eating disorder [Unknown]
  - Neonatal hypoxia [Unknown]
  - Irritability [Unknown]
  - Drug withdrawal syndrome neonatal [Recovered/Resolved]
  - Yawning [Unknown]
  - Foetal exposure during pregnancy [Unknown]
  - Crying [Unknown]
  - Infantile vomiting [Unknown]
  - Neonatal respiratory distress syndrome [Unknown]
